FAERS Safety Report 8941699 (Version 1)
Quarter: 2012Q4

REPORT INFORMATION
  Report Type: 
  Country: AU (occurrence: AU)
  Receive Date: 20121203
  Receipt Date: 20121203
  Transmission Date: 20130627
  Serious: Yes (Other)
  Sender: FDA-Public Use
  Company Number: AU-ROCHE-1157131

PATIENT

DRUGS (15)
  1. RITUXIMAB [Suspect]
     Indication: NON-HODGKIN^S LYMPHOMA RECURRENT
     Route: 065
  2. CARMUSTINE [Suspect]
     Indication: NON-HODGKIN^S LYMPHOMA RECURRENT
     Dosage: on day -6
     Route: 065
  3. ETOPOSIDE [Suspect]
     Indication: NON-HODGKIN^S LYMPHOMA RECURRENT
     Dosage: daily fromdays - 5 to - 2
     Route: 065
  4. CYTARABINE [Suspect]
     Indication: NON-HODGKIN^S LYMPHOMA RECURRENT
     Dosage: twice daily from days -5 to -2
     Route: 065
  5. MELPHALAN [Suspect]
     Indication: NON-HODGKIN^S LYMPHOMA RECURRENT
     Dosage: on day -1
     Route: 065
  6. G-CSF [Concomitant]
     Dosage: daily from day + 1
     Route: 058
  7. DEXAMETHASONE [Concomitant]
     Dosage: before chemotherapy on days - 6 and - 1
     Route: 042
  8. ONDANSETRON [Concomitant]
     Dosage: once on days - 6 and - 1
     Route: 042
  9. ONDANSETRON [Concomitant]
     Dosage: thrice daily from day - 5 to day - 2
     Route: 048
  10. LORAZEPAM [Concomitant]
     Dosage: 1-2 mg
     Route: 048
  11. PROMETHAZINE [Concomitant]
     Dosage: 25-50 mg
     Route: 042
  12. PROMETHAZINE [Concomitant]
     Dosage: 25-50 mg
     Route: 048
  13. VALACICLOVIR [Concomitant]
     Route: 065
  14. FLUCONAZOLE [Concomitant]
     Dosage: daily starting on day + 1 and ending as clinically indicated
     Route: 048
  15. SULFAMETHOXAZOLE/TRIMETHOPRIM [Concomitant]
     Dosage: 800 mg/160mg twice daily on 2days per week
     Route: 065

REACTIONS (4)
  - Neutropenia [Unknown]
  - Pneumocystis jiroveci pneumonia [Unknown]
  - Hypothyroidism [Unknown]
  - Mucosal inflammation [Unknown]
